FAERS Safety Report 4839927-5 (Version None)
Quarter: 2005Q4

REPORT INFORMATION
  Report Type: 
  Country: None (occurrence: None)
  Receive Date: 20051129
  Receipt Date: 20040130
  Transmission Date: 20060501
  Serious: Yes (Hospitalization)
  Sender: FDA-Public Use
  Company Number: PHHO2004DE01648

PATIENT
  Age: 75 Year
  Sex: Male
  Weight: 88 kg

DRUGS (4)
  1. ZOLEDRONIC ACID [Suspect]
     Indication: METASTASES TO BONE
     Dosage: 4 MG, QMO
     Route: 042
     Dates: start: 20030225
  2. SANDOCAL [Concomitant]
  3. CASODEX [Concomitant]
  4. ENANTONE [Concomitant]

REACTIONS (2)
  - LOCAL SWELLING [None]
  - OSTEOMYELITIS [None]
